FAERS Safety Report 18706931 (Version 1)
Quarter: 2021Q1

REPORT INFORMATION
  Report Type: Spontaneous
  Country: US (occurrence: US)
  Receive Date: 20210106
  Receipt Date: 20210106
  Transmission Date: 20210419
  Serious: No
  Sender: FDA-Public Use
  Company Number: US-009507513-2012USA012972

PATIENT
  Age: 73 Year
  Sex: Male

DRUGS (1)
  1. PRINIVIL [Suspect]
     Active Substance: LISINOPRIL
     Indication: ACUTE KIDNEY INJURY
     Dosage: LOW DOSE
     Route: 048

REACTIONS (1)
  - Product use in unapproved indication [Unknown]
